FAERS Safety Report 14297752 (Version 3)
Quarter: 2021Q1

REPORT INFORMATION
  Report Type: Spontaneous
  Country: CZ (occurrence: CZ)
  Receive Date: 20171218
  Receipt Date: 20210205
  Transmission Date: 20210419
  Serious: Yes (Death, Life-Threatening, Other)
  Sender: FDA-Public Use
  Company Number: CZ-MYLANLABS-2017M1078819

PATIENT
  Age: 43 Year
  Sex: Female

DRUGS (11)
  1. MYCOPHENOLATE MOFETIL. [Suspect]
     Active Substance: MYCOPHENOLATE MOFETIL
     Indication: ACUTE MYELOID LEUKAEMIA
     Dosage: UNK
     Route: 065
  2. DOXORUBICIN [Suspect]
     Active Substance: DOXORUBICIN
     Indication: POST TRANSPLANT LYMPHOPROLIFERATIVE DISORDER
     Dosage: UNK
     Route: 065
  3. VINCRISTINE [Suspect]
     Active Substance: VINCRISTINE
     Indication: POST TRANSPLANT LYMPHOPROLIFERATIVE DISORDER
     Dosage: UNK
     Route: 065
  4. TACROLIMUS. [Suspect]
     Active Substance: TACROLIMUS
     Indication: ACUTE MYELOID LEUKAEMIA
     Dosage: UNK
     Route: 065
  5. METHYLPREDNISOLONE. [Suspect]
     Active Substance: METHYLPREDNISOLONE
     Indication: POST TRANSPLANT LYMPHOPROLIFERATIVE DISORDER
     Dosage: 2 MG/KG
     Route: 065
  6. PREDNISONE. [Suspect]
     Active Substance: PREDNISONE
     Indication: POST TRANSPLANT LYMPHOPROLIFERATIVE DISORDER
     Dosage: UNK
     Route: 065
  7. RITUXIMAB. [Suspect]
     Active Substance: RITUXIMAB
     Indication: POST TRANSPLANT LYMPHOPROLIFERATIVE DISORDER
     Dosage: 375 MILLIGRAM/SQ. METER/ON DAYS 1, 8, 15, 22
     Route: 065
  8. CYCLOPHOSPHAMIDE. [Suspect]
     Active Substance: CYCLOPHOSPHAMIDE
     Indication: POST TRANSPLANT LYMPHOPROLIFERATIVE DISORDER
     Dosage: 6 MILLIGRAM/SQ. METER
     Route: 065
  9. LINEZOLID. [Concomitant]
     Active Substance: LINEZOLID
     Indication: DIARRHOEA
     Dosage: UNK
  10. AMIKACIN. [Concomitant]
     Active Substance: AMIKACIN
     Indication: DIARRHOEA
     Dosage: UNK
  11. MEROPENEM. [Concomitant]
     Active Substance: MEROPENEM
     Indication: DIARRHOEA
     Dosage: UNK

REACTIONS (4)
  - Sepsis [Not Recovered/Not Resolved]
  - Drug ineffective [Fatal]
  - Epstein-Barr virus infection [Unknown]
  - Septic shock [Fatal]
